FAERS Safety Report 5778509-8 (Version None)
Quarter: 2008Q2

REPORT INFORMATION
  Report Type: 
  Country: None (occurrence: None)
  Receive Date: 20080619
  Receipt Date: 20080613
  Transmission Date: 20081010
  Serious: Yes (Other)
  Sender: FDA-Public Use
  Company Number: GB-AVENTIS-200812913EU

PATIENT
  Age: 34 Year
  Sex: Female

DRUGS (3)
  1. CLEXANE [Suspect]
     Indication: ANTIPHOSPHOLIPID SYNDROME
     Route: 058
  2. CLEXANE [Suspect]
     Route: 058
  3. ASPIRIN [Concomitant]

REACTIONS (2)
  - ABORTION SPONTANEOUS [None]
  - DRUG EXPOSURE DURING PREGNANCY [None]
